FAERS Safety Report 8737929 (Version 2)
Quarter: 2013Q4

REPORT INFORMATION
  Report Type: Spontaneous
  Country: GB (occurrence: GB)
  Receive Date: 20120823
  Receipt Date: 20131031
  Transmission Date: 20140711
  Serious: Yes (Other)
  Sender: FDA-Public Use
  Company Number: GB-009507513-1208GBR004734

PATIENT
  Age: 83 Year
  Sex: Female
  Weight: 70 kg

DRUGS (11)
  1. EZETROL [Suspect]
  2. ASPIRIN [Concomitant]
     Dosage: UNK
     Dates: start: 20120403, end: 20120705
  3. BECONASE [Concomitant]
     Dosage: UNK
     Dates: start: 20120503, end: 20120531
  4. BECONASE [Concomitant]
     Dosage: UNK
     Dates: start: 20120627, end: 20120725
  5. BENDROFLUMETHIAZIDE [Concomitant]
     Dosage: UNK
     Dates: start: 20120503, end: 20120627
  6. HYPROMELLOSE [Concomitant]
     Dosage: UNK
     Dates: start: 20120410, end: 20120725
  7. IBUPROFEN [Concomitant]
     Dosage: UNK
     Dates: start: 20120627, end: 20120707
  8. METFORMIN [Concomitant]
     Dosage: UNK
     Dates: start: 20120403
  9. MOVICOL [Concomitant]
     Dosage: UNK
     Dates: start: 20120510, end: 20120607
  10. OMACOR [Concomitant]
     Dosage: UNK
     Dates: start: 20120307, end: 20120529
  11. VAGIFEM [Concomitant]
     Dosage: UNK
     Dates: start: 20120410, end: 20120607

REACTIONS (1)
  - Somnolence [Recovered/Resolved]
